FAERS Safety Report 5134730-3 (Version None)
Quarter: 2006Q4

REPORT INFORMATION
  Report Type: 
  Country: None (occurrence: None)
  Receive Date: 20060831
  Receipt Date: 20060210
  Transmission Date: 20070319
  Serious: No
  Sender: FDA-Public Use
  Company Number: 250797

PATIENT
  Age: 78 Year
  Sex: Male

DRUGS (1)
  1. NOVOLIN 70/30 [Suspect]
     Indication: INSULIN-REQUIRING TYPE II DIABETES MELLITUS
     Dosage: 42 IU, QD, SUBCUTANEOUS
     Route: 058
     Dates: start: 19980101

REACTIONS (1)
  - BLOOD GLUCOSE DECREASED [None]
